FAERS Safety Report 12280245 (Version 1)
Quarter: 2016Q2

REPORT INFORMATION
  Report Type: Spontaneous
  Country: GB (occurrence: GB)
  Receive Date: 20160419
  Receipt Date: 20160419
  Transmission Date: 20160815
  Serious: Yes (Other)
  Sender: FDA-Public Use
  Company Number: GB-AMGEN-GBRSP2016037972

PATIENT
  Age: 57 Year
  Sex: Female

DRUGS (1)
  1. ENBREL [Suspect]
     Active Substance: ETANERCEPT
     Indication: RHEUMATOID ARTHRITIS
     Dosage: 50 MG, WEEKLY
     Route: 058

REACTIONS (10)
  - Lethargy [Recovered/Resolved]
  - Pain in extremity [Unknown]
  - Axillary mass [Unknown]
  - Fatigue [Unknown]
  - Fatigue [Unknown]
  - Upper extremity mass [Unknown]
  - Injection site reaction [Unknown]
  - Peripheral swelling [Unknown]
  - Tuberculosis [Unknown]
  - Nausea [Unknown]

NARRATIVE: CASE EVENT DATE: 20160329
